FAERS Safety Report 10759402 (Version 1)
Quarter: 2015Q1

REPORT INFORMATION
  Report Type: Report from Study
  Country: ES (occurrence: ES)
  Receive Date: 20150203
  Receipt Date: 20150203
  Transmission Date: 20150721
  Serious: Yes (Death)
  Sender: FDA-Public Use
  Company Number: ES-ABBVIE-15P-144-1340330-00

PATIENT
  Sex: Female

DRUGS (2)
  1. SYNAGIS [Suspect]
     Active Substance: PALIVIZUMAB
     Indication: ANTIVIRAL PROPHYLAXIS
     Dosage: 1ST DOSE
     Route: 065
     Dates: start: 20141119
  2. SYNAGIS [Suspect]
     Active Substance: PALIVIZUMAB
     Dosage: 2ND DOSE
     Route: 065
     Dates: start: 20141204

REACTIONS (1)
  - Death [Fatal]
